FAERS Safety Report 9205706 (Version 1)
Quarter: 2013Q2

REPORT INFORMATION
  Report Type: Spontaneous
  Country: CA (occurrence: CA)
  Receive Date: 20130403
  Receipt Date: 20130403
  Transmission Date: 20140414
  Serious: Yes (Other)
  Sender: FDA-Public Use
  Company Number: CA-PFIZER INC-2013101844

PATIENT
  Age: 72 Year
  Sex: Male
  Weight: 105 kg

DRUGS (8)
  1. VIAGRA [Suspect]
     Indication: ERECTILE DYSFUNCTION
     Dosage: 100 MG, AS NEEDED
     Route: 048
     Dates: start: 201211, end: 201211
  2. METFORMIN [Concomitant]
     Dosage: 2 TABLETS, 2X/DAY
  3. FUROSEMIDE [Concomitant]
     Dosage: 20 MG, 1X/DAY
  4. RAMIPRIL [Concomitant]
     Dosage: 10 MG, 2X/DAY
  5. GLICLAZIDE [Concomitant]
     Dosage: 120 MG (4 X 30MG), 2X/DAY
  6. ONGLYZA [Concomitant]
     Dosage: 5 MG, 1X/DAY
  7. LABETALOL [Concomitant]
     Dosage: 100 MG, 1X/DAY
  8. NAPROXEN [Concomitant]
     Indication: HEADACHE
     Dosage: 250 MG, AS NEEDED

REACTIONS (2)
  - Protein urine present [Unknown]
  - Drug ineffective [Unknown]
